FAERS Safety Report 7678200-7 (Version None)
Quarter: 2011Q3

REPORT INFORMATION
  Report Type: 
  Country: None (occurrence: None)
  Receive Date: 20110811
  Receipt Date: 20110809
  Transmission Date: 20111222
  Serious: Yes (Death)
  Sender: FDA-Public Use
  Company Number: US-ABBOTT-11P-163-0836573-00

PATIENT
  Sex: Male
  Weight: 99.426 kg

DRUGS (9)
  1. INDEROL [Concomitant]
     Indication: PRODUCT USED FOR UNKNOWN INDICATION
     Dates: start: 20101021
  2. RISPERDAL [Concomitant]
     Indication: PRODUCT USED FOR UNKNOWN INDICATION
     Dosage: 24 M AM, 64 M HS
     Dates: start: 20101021
  3. CELEXA [Concomitant]
     Indication: PRODUCT USED FOR UNKNOWN INDICATION
     Dosage: 20 MG QHS
     Dates: start: 20110127
  4. LISINOPRIL [Concomitant]
     Indication: HYPERTENSION
  5. CARDIZEM [Concomitant]
     Indication: HYPERTENSION
  6. TRAZODONE HCL [Concomitant]
     Indication: PRODUCT USED FOR UNKNOWN INDICATION
     Dosage: 150MG QHS
     Dates: start: 20110621
  7. VISTEROL [Concomitant]
     Indication: PRODUCT USED FOR UNKNOWN INDICATION
     Dates: start: 20110127
  8. DEPAKOTE [Suspect]
     Indication: AFFECTIVE DISORDER
     Dates: start: 20101001, end: 20110621
  9. BUSPAR [Concomitant]
     Indication: PRODUCT USED FOR UNKNOWN INDICATION
     Dates: start: 20101021

REACTIONS (4)
  - ASPIRATION [None]
  - WEIGHT DECREASED [None]
  - VOMITING [None]
  - ALCOHOL POISONING [None]
